FAERS Safety Report 24635105 (Version 1)
Quarter: 2024Q4

REPORT INFORMATION
  Report Type: Spontaneous
  Country: US (occurrence: US)
  Receive Date: 20241119
  Receipt Date: 20241119
  Transmission Date: 20250114
  Serious: Yes (Other)
  Sender: BANNER
  Company Number: None

PATIENT
  Age: 80 Year
  Sex: Female

DRUGS (5)
  1. IBUPROFEN [Suspect]
     Active Substance: IBUPROFEN
     Indication: Analgesic therapy
  2. VANCOMYCIN [Concomitant]
     Active Substance: VANCOMYCIN
     Dosage: IV ANTIBIOTICS
  3. CEFEPIME [Concomitant]
     Active Substance: CEFEPIME HYDROCHLORIDE
     Dosage: IV ANTIBIOTICS
  4. DOXYCYCLINE [Concomitant]
     Active Substance: DOXYCYCLINE
     Dosage: IV ANTIBIOTICS
  5. TRIAMCINOLONE [Concomitant]
     Active Substance: TRIAMCINOLONE
     Route: 061

REACTIONS (4)
  - Urticaria [Unknown]
  - Rash morbilliform [Unknown]
  - Rash erythematous [Unknown]
  - Generalised pustular psoriasis [Unknown]
